FAERS Safety Report 8270012-9 (Version None)
Quarter: 2012Q2

REPORT INFORMATION
  Report Type: 
  Country: None (occurrence: None)
  Receive Date: 20120405
  Receipt Date: 20111111
  Transmission Date: 20120825
  Serious: Yes (Hospitalization)
  Sender: FDA-Public Use
  Company Number: IN-024384

PATIENT
  Age: 58 Year
  Sex: Male

DRUGS (2)
  1. (CHLORAMBUCIL) [Suspect]
     Indication: CHRONIC LYMPHOCYTIC LEUKAEMIA
     Dosage: INJECTION,  10 MGM2 DAYS 1-7 EVERY 28 DAYS  ORAL
     Route: 048
     Dates: start: 20110324, end: 20110324
  2. (OFATUMUMAB) [Suspect]
     Indication: CHRONIC LYMPHOCYTIC LEUKAEMIA
     Dosage: INTRAVENOUS (NOT OTHERWISE SPECIFIED), 300 MG DAY 1, 1000 MG DAY 8 FOLLOWED BY 1000 MG
     Route: 042

REACTIONS (7)
  - WHITE BLOOD CELL COUNT INCREASED [None]
  - FEBRILE NEUTROPENIA [None]
  - PLATELET COUNT DECREASED [None]
  - WHITE BLOOD CELL COUNT DECREASED [None]
  - DISCOMFORT [None]
  - PRODUCTIVE COUGH [None]
  - SPUTUM DISCOLOURED [None]
